FAERS Safety Report 9166692 (Version 1)
Quarter: 2013Q1

REPORT INFORMATION
  Report Type: Spontaneous
  Country: US (occurrence: US)
  Receive Date: 20130315
  Receipt Date: 20130315
  Transmission Date: 20140127
  Serious: Yes (Other)
  Sender: FDA-Public Use
  Company Number: CHPA2013US004414

PATIENT
  Sex: Male

DRUGS (1)
  1. EXCEDRIN ES BACK + BODY [Suspect]
     Dosage: UNK, UNK

REACTIONS (1)
  - Atrial fibrillation [Unknown]
